FAERS Safety Report 14781539 (Version 2)
Quarter: 2018Q2

REPORT INFORMATION
  Report Type: Spontaneous
  Country: US (occurrence: US)
  Receive Date: 20180420
  Receipt Date: 20180424
  Transmission Date: 20180711
  Serious: No
  Sender: FDA-Public Use
  Company Number: US-UNITED THERAPEUTICS-UNT-2018-002880

PATIENT
  Age: 60 Year
  Sex: Female

DRUGS (5)
  1. ORENITRAM [Suspect]
     Active Substance: TREPROSTINIL
     Indication: PULMONARY HYPERTENSION
     Dosage: 7.625 MG, TID
     Route: 048
     Dates: start: 20180224
  2. ORENITRAM [Suspect]
     Active Substance: TREPROSTINIL
     Indication: PULMONARY ARTERIAL HYPERTENSION
     Dosage: 7.5 MG, TID
     Route: 048
     Dates: start: 20160125
  3. ADCIRCA [Suspect]
     Active Substance: TADALAFIL
     Indication: PULMONARY HYPERTENSION
     Dosage: 40 MG, QD
     Route: 065
     Dates: start: 20150624
  4. ORENITRAM [Suspect]
     Active Substance: TREPROSTINIL
     Dosage: 8.625 MG, TID
     Route: 048
     Dates: start: 20160126
  5. LETAIRIS [Suspect]
     Active Substance: AMBRISENTAN
     Indication: PULMONARY HYPERTENSION
     Dosage: 10 MG, QD
     Route: 065
     Dates: start: 20150326

REACTIONS (9)
  - Ear congestion [Unknown]
  - Nasal congestion [Recovering/Resolving]
  - Inappropriate schedule of drug administration [Unknown]
  - Middle ear effusion [Unknown]
  - Heart rate increased [Unknown]
  - Malaise [Recovering/Resolving]
  - Gastroenteritis viral [Recovering/Resolving]
  - Abdominal discomfort [Unknown]
  - Nasopharyngitis [Recovering/Resolving]

NARRATIVE: CASE EVENT DATE: 201802
